FAERS Safety Report 6787264-4 (Version None)
Quarter: 2010Q2

REPORT INFORMATION
  Report Type: 
  Country: None (occurrence: None)
  Receive Date: 20100623
  Receipt Date: 20100617
  Transmission Date: 20101027
  Serious: Yes (Other)
  Sender: FDA-Public Use
  Company Number: JP-ABBOTT-10P-087-0649376-00

PATIENT
  Age: 12 Year
  Sex: Female

DRUGS (9)
  1. LEUPLIN FOR INJECTION 1.88 MG [Suspect]
     Indication: PRECOCIOUS PUBERTY
     Route: 058
     Dates: start: 20090701
  2. DECADRON [Suspect]
     Indication: DRUG USE FOR UNKNOWN INDICATION
     Route: 065
  3. ONCOVIN [Suspect]
     Indication: DRUG USE FOR UNKNOWN INDICATION
     Route: 050
  4. ADRIACIN [Suspect]
     Indication: DRUG USE FOR UNKNOWN INDICATION
     Route: 050
  5. LEUNASE [Suspect]
     Indication: DRUG USE FOR UNKNOWN INDICATION
     Route: 050
  6. COTRIM [Suspect]
     Indication: DRUG USE FOR UNKNOWN INDICATION
     Route: 048
  7. POLYMYXIN [Suspect]
     Indication: DRUG USE FOR UNKNOWN INDICATION
     Route: 065
  8. DIFLUCAN [Suspect]
     Indication: DRUG USE FOR UNKNOWN INDICATION
     Route: 065
  9. MAGLAX [Suspect]
     Indication: DRUG USE FOR UNKNOWN INDICATION
     Route: 048

REACTIONS (1)
  - GRAND MAL CONVULSION [None]
